FAERS Safety Report 6331436-X (Version None)
Quarter: 2009Q3

REPORT INFORMATION
  Report Type: 
  Country: None (occurrence: None)
  Receive Date: 20090827
  Receipt Date: 20090818
  Transmission Date: 20100115
  Serious: Yes (Other)
  Sender: FDA-Public Use
  Company Number: AU-ABBOTT-09P-008-0592034-00

PATIENT
  Age: 55 Year
  Sex: Male

DRUGS (6)
  1. LOPINAVIR AND RITONAVIR [Suspect]
     Indication: ANTIRETROVIRAL THERAPY
  2. DIDANOSINE [Concomitant]
     Indication: ANTIRETROVIRAL THERAPY
  3. TENOFOVIR [Concomitant]
     Indication: ANTIRETROVIRAL THERAPY
  4. RITONAVIR [Concomitant]
     Indication: ANTIRETROVIRAL THERAPY
  5. EMTRICITABINE [Concomitant]
     Indication: ANTIRETROVIRAL THERAPY
  6. FOSAMPRENAVIR [Concomitant]
     Indication: ANTIRETROVIRAL THERAPY

REACTIONS (1)
  - ARRHYTHMIA [None]
